FAERS Safety Report 25109685 (Version 2)
Quarter: 2025Q2

REPORT INFORMATION
  Report Type: Report from Study
  Country: JP (occurrence: JP)
  Receive Date: 20250323
  Receipt Date: 20250406
  Transmission Date: 20250716
  Serious: Yes (Hospitalization, Other)
  Sender: TAKEDA
  Company Number: JP-TAKEDA-2025TJP002819

PATIENT
  Age: 35 Year
  Sex: Female
  Weight: 43.7 kg

DRUGS (14)
  1. TEDUGLUTIDE [Suspect]
     Active Substance: TEDUGLUTIDE
     Indication: Short-bowel syndrome
     Dosage: 2 MILLIGRAM, QD
     Dates: start: 20240712
  2. TEDUGLUTIDE [Suspect]
     Active Substance: TEDUGLUTIDE
  3. TEDUGLUTIDE [Suspect]
     Active Substance: TEDUGLUTIDE
  4. TEDUGLUTIDE [Suspect]
     Active Substance: TEDUGLUTIDE
  5. AMINO ACIDS\DEXTROSE\ELECTROLYTES NOS\MINERALS\VITAMINS [Concomitant]
     Active Substance: AMINO ACIDS\DEXTROSE\ELECTROLYTES NOS\MINERALS\VITAMINS
     Indication: Short-bowel syndrome
     Dosage: 2000 MILLILITER, QD
  6. ASELEND [Concomitant]
     Indication: Short-bowel syndrome
     Dosage: 100 MICROGRAM, QD
  7. LEVOTHYROXINE SODIUM [Concomitant]
     Active Substance: LEVOTHYROXINE SODIUM
     Indication: Hypopituitarism
     Dosage: 25 MICROGRAM, QD
  8. CODEINE PHOSPHATE [Concomitant]
     Active Substance: CODEINE PHOSPHATE
     Indication: Short-bowel syndrome
     Dosage: 2 GRAM, TID
  9. DUPHASTON [Concomitant]
     Active Substance: DYDROGESTERONE
     Indication: Hypopituitarism
     Dosage: 5 MILLIGRAM, BID
  10. MIYA-BM [Concomitant]
     Active Substance: CLOSTRIDIUM BUTYRICUM SPORES STRAIN M-55
     Indication: Short-bowel syndrome
     Dosage: 20 MILLIGRAM, TID
  11. ALBUMIN TANNATE [Concomitant]
     Active Substance: ALBUMIN TANNATE
     Indication: Short-bowel syndrome
     Dosage: 1 GRAM, TID
  12. ESOMEPRAZOLE [Concomitant]
     Active Substance: ESOMEPRAZOLE
     Indication: Short-bowel syndrome
     Dosage: 20 MILLIGRAM, QD
  13. ZINC ACETATE [Concomitant]
     Active Substance: ZINC ACETATE
     Indication: Zinc deficiency
     Dosage: 50 MILLIGRAM, TID
  14. LOPERAMIDE [Concomitant]
     Active Substance: LOPERAMIDE
     Indication: Short-bowel syndrome
     Dosage: 1 MILLIGRAM, TID

REACTIONS (1)
  - Vascular device infection [Recovered/Resolved]

NARRATIVE: CASE EVENT DATE: 20240901
